FAERS Safety Report 23653038 (Version 5)
Quarter: 2024Q3

REPORT INFORMATION
  Report Type: Spontaneous
  Country: JP (occurrence: JP)
  Receive Date: 20240320
  Receipt Date: 20240711
  Transmission Date: 20241017
  Serious: Yes (Other)
  Sender: PFIZER
  Company Number: JP-ONO-2024JP005830

PATIENT
  Age: 70 Year
  Sex: Male
  Weight: 72 kg

DRUGS (9)
  1. BRAFTOVI [Suspect]
     Active Substance: ENCORAFENIB
     Indication: Colon cancer
     Dosage: 200 MG, DAILY
     Route: 048
     Dates: start: 20240313, end: 20240313
  2. BRAFTOVI [Suspect]
     Active Substance: ENCORAFENIB
     Dosage: 200 MG, DAILY
     Route: 048
     Dates: start: 20240326
  3. MEKTOVI [Suspect]
     Active Substance: BINIMETINIB
     Indication: Colon cancer
     Dosage: 45 MG, DAILY (STARTED IN THE EVENING)
     Route: 048
     Dates: start: 20240312, end: 20240312
  4. MEKTOVI [Suspect]
     Active Substance: BINIMETINIB
     Dosage: 45 MG, 2X/DAY (IN THE MORNING AND EVENING)
     Route: 048
     Dates: start: 20240313, end: 20240313
  5. ERBITUX [Concomitant]
     Active Substance: CETUXIMAB
     Indication: Colon cancer
     Dosage: 750 MG
     Route: 041
     Dates: start: 20240312, end: 20240313
  6. ERBITUX [Concomitant]
     Active Substance: CETUXIMAB
     Dosage: 750 MG
     Route: 041
     Dates: start: 20240326
  7. MIYA-BM [Concomitant]
     Active Substance: CLOSTRIDIUM BUTYRICUM SPORES STRAIN M-55
     Dosage: 1 DF, Q8H
     Route: 048
     Dates: start: 20240118
  8. MIROGABALIN BESYLATE [Concomitant]
     Active Substance: MIROGABALIN BESYLATE
     Dosage: 5 MG, Q12H
     Route: 048
     Dates: start: 20240116
  9. HERBALS [Concomitant]
     Active Substance: HERBALS
     Dosage: 1 DF, Q8H (GRAIN)
     Route: 048
     Dates: start: 20240118

REACTIONS (5)
  - Cystoid macular oedema [Recovering/Resolving]
  - Detachment of retinal pigment epithelium [Recovering/Resolving]
  - Melanocytic naevus [Not Recovered/Not Resolved]
  - Sinus tachycardia [Recovering/Resolving]
  - Off label use [Unknown]

NARRATIVE: CASE EVENT DATE: 20240312
